FAERS Safety Report 8864975 (Version 1)
Quarter: 2012Q4

REPORT INFORMATION
  Report Type: 
  Country: US (occurrence: US)
  Receive Date: 20121024
  Receipt Date: 20121024
  Transmission Date: 20130627
  Serious: No
  Sender: FDA-Public Use
  Company Number: US-AMGEN-USASP2012000200

PATIENT
  Age: 71 Year
  Sex: Male

DRUGS (10)
  1. ENBREL [Suspect]
     Indication: RHEUMATOID ARTHRITIS
     Dosage: 50 mg, qwk
     Route: 058
  2. ENALAPRIL [Concomitant]
     Dosage: 2.5 mg, UNK
  3. RAMIPRIL [Concomitant]
     Dosage: 1.25 mg, UNK
  4. SIMVASTATIN [Concomitant]
     Dosage: 5 mg, UNK
  5. OMEPRAZOLE [Concomitant]
     Dosage: 20 mg, UNK
  6. FOLIC ACID [Concomitant]
     Dosage: 5 mg, UNK
  7. PREDNISONE [Concomitant]
     Dosage: 5 mg, UNK
  8. JALYN [Concomitant]
  9. NIACIN [Concomitant]
     Dosage: 250 mg, UNK
  10. LEFLUNOMIDE [Concomitant]
     Dosage: 10 mg, UNK

REACTIONS (2)
  - Swelling face [Unknown]
  - Sinusitis [Unknown]
